FAERS Safety Report 16241492 (Version 2)
Quarter: 2019Q2

REPORT INFORMATION
  Report Type: Spontaneous
  Country: NL (occurrence: NL)
  Receive Date: 20190426
  Receipt Date: 20190613
  Transmission Date: 20190711
  Serious: Yes (Death, Disabling, Other)
  Sender: FDA-Public Use
  Company Number: NL-AUROBINDO-AUR-APL-2019-022482

PATIENT

DRUGS (1)
  1. CLOZAPINE. [Suspect]
     Active Substance: CLOZAPINE
     Indication: SCHIZOPHRENIA
     Dosage: UNK
     Route: 065
     Dates: start: 2013

REACTIONS (5)
  - Myocarditis [Fatal]
  - Vomiting [Fatal]
  - Cardiac failure [Fatal]
  - Gastroenteritis viral [Fatal]
  - Diarrhoea [Fatal]

NARRATIVE: CASE EVENT DATE: 2013
